FAERS Safety Report 7921940-2 (Version None)
Quarter: 2011Q4

REPORT INFORMATION
  Report Type: 
  Country: None (occurrence: None)
  Receive Date: 20111117
  Receipt Date: 20111027
  Transmission Date: 20120403
  Serious: Yes (Hospitalization)
  Sender: FDA-Public Use
  Company Number: FR-ROCHE-784112

PATIENT
  Sex: Male
  Weight: 77 kg

DRUGS (11)
  1. MYCOPHENOLATE MOFETIL (CELLCEPT) [Suspect]
     Dosage: DOSE REDUCED
     Route: 048
  2. EVEROLIMUS [Suspect]
     Dosage: DOSE REDUCED
     Route: 048
     Dates: start: 20110607, end: 20110608
  3. MYCOPHENOLATE MOFETIL (CELLCEPT) [Suspect]
     Route: 048
     Dates: start: 20110528, end: 20110615
  4. PREDNISOLONE SODIUM METASULFOBENZOATE [Suspect]
     Indication: RENAL TRANSPLANT
     Route: 048
  5. TENORMIN [Concomitant]
  6. VALGANCICLOVIR [Concomitant]
  7. EVEROLIMUS [Suspect]
     Indication: RENAL TRANSPLANT
     Route: 048
     Dates: start: 20110522, end: 20110606
  8. AUGMENTIN [Concomitant]
     Dosage: TDD: 500 MG X 3
  9. MYCOPHENOLATE MOFETIL (CELLCEPT) [Suspect]
     Indication: RENAL TRANSPLANT
     Route: 048
  10. PROGRAF [Concomitant]
     Indication: PRODUCT USED FOR UNKNOWN INDICATION
  11. LASIX [Concomitant]

REACTIONS (7)
  - SCAR PAIN [None]
  - RENAL IMPAIRMENT [None]
  - LYMPHATIC DISORDER [None]
  - IMPAIRED HEALING [None]
  - HYDRONEPHROSIS [None]
  - NEUTROPENIA [None]
  - BLOOD CREATININE INCREASED [None]
